FAERS Safety Report 24757604 (Version 2)
Quarter: 2025Q1

REPORT INFORMATION
  Report Type: Spontaneous
  Country: CA (occurrence: CA)
  Receive Date: 20241220
  Receipt Date: 20250224
  Transmission Date: 20250409
  Serious: Yes (Other)
  Sender: CSL BEHRING
  Company Number: CA-BEH-2024187537

PATIENT
  Age: 49 Year
  Sex: Female
  Weight: 47 kg

DRUGS (1)
  1. HUMAN C1-ESTERASE INHIBITOR [Suspect]
     Active Substance: HUMAN C1-ESTERASE INHIBITOR
     Indication: Hereditary angioedema
     Route: 042

REACTIONS (5)
  - Drug hypersensitivity [Unknown]
  - Fatigue [Unknown]
  - Ill-defined disorder [Unknown]
  - Seizure [Unknown]
  - Vein rupture [Unknown]

NARRATIVE: CASE EVENT DATE: 20210501
